FAERS Safety Report 5832218-5 (Version None)
Quarter: 2008Q3

REPORT INFORMATION
  Report Type: 
  Country: None (occurrence: None)
  Receive Date: 20080730
  Receipt Date: 20080716
  Transmission Date: 20090109
  Serious: Yes (Life-Threatening, Disabling, Other)
  Sender: FDA-Public Use
  Company Number: RENA-1000054

PATIENT
  Age: 1 Year
  Sex: Female
  Weight: 4.1 kg

DRUGS (24)
  1. RENAGEL [Suspect]
     Indication: HYPERPHOSPHATAEMIA
     Dosage: 0.75 G, QD, ORAL, 0.5 G, QD, ORAL, 0.25 G, QD, ORAL,
     Route: 048
     Dates: start: 20051006, end: 20051014
  2. RENAGEL [Suspect]
     Indication: HYPERPHOSPHATAEMIA
     Dosage: 0.75 G, QD, ORAL, 0.5 G, QD, ORAL, 0.25 G, QD, ORAL,
     Route: 048
     Dates: start: 20051015, end: 20051107
  3. RENAGEL [Suspect]
     Indication: HYPERPHOSPHATAEMIA
     Dosage: 0.75 G, QD, ORAL, 0.5 G, QD, ORAL, 0.25 G, QD, ORAL,
     Route: 048
     Dates: start: 20051108, end: 20051123
  4. RENAGEL [Suspect]
     Indication: HYPERPHOSPHATAEMIA
     Dosage: 0.75 G, QD, ORAL, 0.5 G, QD, ORAL, 0.25 G, QD, ORAL,
     Route: 048
     Dates: start: 20060118, end: 20060126
  5. RENAGEL [Suspect]
     Indication: HYPERPHOSPHATAEMIA
     Dosage: 0.75 G, QD, ORAL, 0.5 G, QD, ORAL, 0.25 G, QD, ORAL,
     Route: 048
     Dates: start: 20060127
  6. CALTAN (PRECIPITATED CALCIUM CARBONATE) [Concomitant]
  7. ALFAROL (ALFACALCIDOL) [Concomitant]
  8. PHENOBARBITAL TAB [Concomitant]
  9. SULFAMETHOXAZOLE AND TRIMETHOPRIM [Concomitant]
  10. BACCIDAL (NORFLOXACIN) TABLET [Concomitant]
  11. FAROM (FAROPENEM SODIUM) [Concomitant]
  12. INCREMIN IRON (FERRIC PYROPHOSPHATE, SOLUBLE) SYRUP [Concomitant]
  13. ROCALTROL (CALCITRIOL) CAPSULE [Concomitant]
  14. MINOCYCLINE HCL [Concomitant]
  15. RIFAMPICIN [Concomitant]
  16. SAWCILLIN (AMOXICILLIN TRIHYDRATE) [Concomitant]
  17. TEGRETOL [Concomitant]
  18. EPOGIN (EPOETIN BETA) INJECTION [Concomitant]
  19. PERIACTIN [Concomitant]
  20. MUCODYNE (CARBOCISTEINE) [Concomitant]
  21. ASVERIN (TIPEPIDINE HIBENZATE) [Concomitant]
  22. PANSPORIN (CEFOTIAM HYDROCHLORIDE) INJECTION [Concomitant]
  23. VANCOMYCIN [Concomitant]
  24. PENTICILLIN (PIPERACILLIN SODIUM) INJECTION [Concomitant]

REACTIONS (13)
  - ACETONAEMIC VOMITING [None]
  - CATHETER RELATED INFECTION [None]
  - DISEASE RECURRENCE [None]
  - EPILEPSY [None]
  - HEPATIC FUNCTION ABNORMAL [None]
  - HYPOKALAEMIA [None]
  - HYPONATRAEMIA [None]
  - IRON DEFICIENCY ANAEMIA [None]
  - NEPHROGENIC ANAEMIA [None]
  - RASH [None]
  - UPPER RESPIRATORY TRACT INFLAMMATION [None]
  - URINARY TRACT INFECTION [None]
  - WHITE BLOOD CELL COUNT INCREASED [None]
